FAERS Safety Report 15417689 (Version 1)
Quarter: 2018Q3

REPORT INFORMATION
  Report Type: Spontaneous
  Country: IL (occurrence: IL)
  Receive Date: 20180924
  Receipt Date: 20180924
  Transmission Date: 20181010
  Serious: Yes (Life-Threatening, Hospitalization)
  Sender: FDA-Public Use
  Company Number: IL-MYLANLABS-2018M1067977

PATIENT
  Age: 22 Year
  Sex: Female

DRUGS (1)
  1. METHOTREXATE. [Suspect]
     Active Substance: METHOTREXATE
     Indication: PREGNANCY TEST FALSE POSITIVE
     Route: 065

REACTIONS (10)
  - Body temperature abnormal [Recovering/Resolving]
  - Dysphagia [Recovering/Resolving]
  - Infection [Recovering/Resolving]
  - Oropharyngeal pain [Recovering/Resolving]
  - Stevens-Johnson syndrome [Recovering/Resolving]
  - Toxicity to various agents [Recovering/Resolving]
  - Bone marrow toxicity [Recovering/Resolving]
  - Rash pruritic [Recovering/Resolving]
  - Mouth ulceration [Recovered/Resolved]
  - Toxic epidermal necrolysis [Recovering/Resolving]
